FAERS Safety Report 8243213-3 (Version None)
Quarter: 2012Q1

REPORT INFORMATION
  Report Type: 
  Country: None (occurrence: None)
  Receive Date: 20120329
  Receipt Date: 20120326
  Transmission Date: 20120608
  Serious: Yes (Life-Threatening, Hospitalization)
  Sender: FDA-Public Use
  Company Number: PT-JNJFOC-20120312191

PATIENT
  Age: 38 Year
  Sex: Female

DRUGS (4)
  1. RALTEGRAVIR [Concomitant]
     Indication: HIV INFECTION
     Route: 065
  2. PREZISTA [Suspect]
     Indication: HIV INFECTION
     Route: 048
  3. TRUVADA [Concomitant]
     Indication: HIV INFECTION
     Route: 065
  4. RITONAVIR [Concomitant]
     Indication: HIV INFECTION
     Route: 065

REACTIONS (2)
  - STEVENS-JOHNSON SYNDROME [None]
  - DYSPNOEA [None]
